FAERS Safety Report 5296387-0 (Version None)
Quarter: 2007Q2

REPORT INFORMATION
  Report Type: 
  Country: None (occurrence: None)
  Receive Date: 20070413
  Receipt Date: 20070405
  Transmission Date: 20071010
  Serious: Yes (Other)
  Sender: FDA-Public Use
  Company Number: SE-BRISTOL-MYERS SQUIBB COMPANY-13746177

PATIENT
  Age: 78 Year
  Sex: Female

DRUGS (5)
  1. ENDOXAN [Suspect]
     Indication: GRANULOMA
     Dates: start: 20061001
  2. LEVAXIN [Concomitant]
  3. SALURES [Concomitant]
  4. SOLU-MEDROL [Concomitant]
  5. CALCIUM CARBONATE [Concomitant]

REACTIONS (4)
  - CHEST PAIN [None]
  - DYSPNOEA [None]
  - NEUTROPENIA [None]
  - PYREXIA [None]
